FAERS Safety Report 5280372-9 (Version None)
Quarter: 2007Q1

REPORT INFORMATION
  Report Type: 
  Country: None (occurrence: None)
  Receive Date: 20061229
  Receipt Date: 20061009
  Transmission Date: 20070707
  Serious: Yes (Other)
  Sender: FDA-Public Use
  Company Number: 2006UW19617

PATIENT
  Age: 50 Year
  Sex: Male

DRUGS (2)
  1. CRESTOR [Suspect]
     Dosage: 5 MG PO
     Route: 048
  2. AMARIL VACCINE ^PASTEUR^ [Concomitant]

REACTIONS (1)
  - PYREXIA [None]
